FAERS Safety Report 19474328 (Version 1)
Quarter: 2021Q2

REPORT INFORMATION
  Report Type: Spontaneous
  Country: FR (occurrence: FR)
  Receive Date: 20210629
  Receipt Date: 20210629
  Transmission Date: 20210717
  Serious: Yes (Life-Threatening, Hospitalization, Other)
  Sender: FDA-Public Use
  Company Number: FR-FERRINGPH-2021FE04038

PATIENT
  Sex: Male

DRUGS (2)
  1. MINIRINMELT [Suspect]
     Active Substance: DESMOPRESSIN ACETATE
     Indication: DIABETES INSIPIDUS
     Dosage: UNK
     Route: 045
  2. MINIRINMELT [Suspect]
     Active Substance: DESMOPRESSIN ACETATE
     Dosage: UNK
     Route: 065

REACTIONS (3)
  - Coma [Not Recovered/Not Resolved]
  - Hypernatraemia [Not Recovered/Not Resolved]
  - Incorrect route of product administration [Not Recovered/Not Resolved]
